FAERS Safety Report 14750534 (Version 1)
Quarter: 2018Q2

REPORT INFORMATION
  Report Type: Spontaneous
  Country: US (occurrence: US)
  Receive Date: 20180406
  Receipt Date: 20180406
  Transmission Date: 20180711
  Serious: Yes (Death)
  Sender: FDA-Public Use
  Company Number: None

PATIENT
  Age: 80 Year
  Sex: Male
  Weight: 90.7 kg

DRUGS (3)
  1. XARELTO [Suspect]
     Active Substance: RIVAROXABAN
     Indication: PULMONARY EMBOLISM
     Route: 048
  2. PLAVIX 75 MG TABLET DAILY [Concomitant]
  3. XARELTO 20 MG TABLET DAILY [Concomitant]

REACTIONS (2)
  - Subdural haematoma [None]
  - Brain herniation [None]

NARRATIVE: CASE EVENT DATE: 20180324
